FAERS Safety Report 19745473 (Version 1)
Quarter: 2021Q3

REPORT INFORMATION
  Report Type: Spontaneous
  Country: FI (occurrence: FI)
  Receive Date: 20210825
  Receipt Date: 20210825
  Transmission Date: 20211014
  Serious: Yes (Disabling)
  Sender: FDA-Public Use
  Company Number: FI-TEVA-2021-FI-1944961

PATIENT
  Age: 54 Year
  Sex: Female

DRUGS (2)
  1. DEPRAKINE [Suspect]
     Active Substance: VALPROIC ACID
     Route: 065
     Dates: start: 2004
  2. OLANZAPINE. [Suspect]
     Active Substance: OLANZAPINE
     Route: 065
     Dates: start: 2004

REACTIONS (3)
  - Nasal congestion [Not Recovered/Not Resolved]
  - Mucosal dryness [Not Recovered/Not Resolved]
  - Dysphonia [Not Recovered/Not Resolved]

NARRATIVE: CASE EVENT DATE: 2004
